FAERS Safety Report 19328121 (Version 4)
Quarter: 2021Q3

REPORT INFORMATION
  Report Type: Spontaneous
  Country: US (occurrence: US)
  Receive Date: 20210528
  Receipt Date: 20210701
  Transmission Date: 20211014
  Serious: Yes (Other)
  Sender: FDA-Public Use
  Company Number: US-ORGANON-O2105USA002007

PATIENT
  Age: 20 Year
  Sex: Female
  Weight: 108.86 kg

DRUGS (3)
  1. COLACE [Concomitant]
     Active Substance: DOCUSATE SODIUM
     Dosage: UNK (PROBABLY SHE WAS NOT TAKING ANYMORE)
  2. NEXPLANON [Suspect]
     Active Substance: ETONOGESTREL
     Dosage: 1 IMPLANT OF 68 MILLIGRAM (MG), LEFT UPPER ARM
     Route: 059
     Dates: start: 20180512
  3. PEPCID [Concomitant]
     Active Substance: FAMOTIDINE
     Dosage: UNK

REACTIONS (4)
  - Gastrectomy [Unknown]
  - Device dislocation [Not Recovered/Not Resolved]
  - Device issue [Not Recovered/Not Resolved]
  - Complication associated with device [Recovered/Resolved]

NARRATIVE: CASE EVENT DATE: 20210202
